FAERS Safety Report 11310512 (Version 1)
Quarter: 2015Q3

REPORT INFORMATION
  Report Type: Report from Study
  Country: US (occurrence: US)
  Receive Date: 20150724
  Receipt Date: 20150724
  Transmission Date: 20151125
  Serious: Yes (Hospitalization, Other)
  Sender: FDA-Public Use
  Company Number: US-ACTELION-A-US2015-121330

PATIENT
  Age: 18 Year
  Sex: Female

DRUGS (2)
  1. TRACLEER [Suspect]
     Active Substance: BOSENTAN
     Indication: PULMONARY ARTERIAL HYPERTENSION
     Dosage: UNK
     Route: 048
  2. ESBRIET [Concomitant]
     Active Substance: PIRFENIDONE

REACTIONS (5)
  - Throat irritation [Unknown]
  - Dysphonia [Unknown]
  - Lung disorder [Unknown]
  - Throat tightness [Unknown]
  - Oropharyngeal pain [Unknown]
